FAERS Safety Report 9805192 (Version 1)
Quarter: 2014Q1

REPORT INFORMATION
  Report Type: Spontaneous
  Country: US (occurrence: US)
  Receive Date: 20140109
  Receipt Date: 20140109
  Transmission Date: 20141002
  Serious: No
  Sender: FDA-Public Use
  Company Number: US-009507513-1401USA002179

PATIENT
  Sex: Female

DRUGS (8)
  1. JANUMET [Suspect]
     Indication: DIABETES MELLITUS
     Dosage: UNK UNK, BID; 1000 IN THE MORNING AND 1000 AT NIGHT
     Route: 048
     Dates: start: 2010
  2. JANUMET XR [Suspect]
     Indication: DIABETES MELLITUS
     Dosage: UNK
     Route: 048
     Dates: end: 20131007
  3. JANUMET XR [Suspect]
     Indication: BLOOD GLUCOSE INCREASED
  4. INVOKANA [Concomitant]
  5. GLYBURIDE [Concomitant]
  6. LISINOPRIL [Concomitant]
  7. LIPITOR [Concomitant]
  8. GEMFIBROZIL [Concomitant]

REACTIONS (1)
  - Diarrhoea [Recovered/Resolved]
